FAERS Safety Report 5536501-2 (Version None)
Quarter: 2007Q4

REPORT INFORMATION
  Report Type: 
  Country: None (occurrence: None)
  Receive Date: 20071206
  Receipt Date: 20071016
  Transmission Date: 20080405
  Serious: Yes (Hospitalization)
  Sender: FDA-Public Use
  Company Number: US-AMGEN-QUU248371

PATIENT
  Sex: Female

DRUGS (3)
  1. ENBREL [Suspect]
     Indication: RHEUMATOID ARTHRITIS
     Route: 058
     Dates: start: 20010521
  2. ENBREL [Suspect]
     Indication: SJOGREN'S SYNDROME
  3. METHOTREXATE [Concomitant]
     Dates: start: 20071009

REACTIONS (7)
  - ARTHRALGIA [None]
  - BACK PAIN [None]
  - DRY EYE [None]
  - EYE INFECTION [None]
  - OEDEMA PERIPHERAL [None]
  - PAIN IN EXTREMITY [None]
  - RENAL CELL CARCINOMA STAGE UNSPECIFIED [None]
